FAERS Safety Report 18176407 (Version 5)
Quarter: 2020Q4

REPORT INFORMATION
  Report Type: Report from Study
  Country: BR (occurrence: BR)
  Receive Date: 20200820
  Receipt Date: 20201204
  Transmission Date: 20210113
  Serious: Yes (Life-Threatening, Hospitalization, Other)
  Sender: FDA-Public Use
  Company Number: BR-SHIRE-BR202009006

PATIENT
  Age: 15 Year
  Sex: Male
  Weight: 49 kg

DRUGS (9)
  1. IDURSULFASE [Suspect]
     Active Substance: IDURSULFASE
     Dosage: UNKNOWN, EVERY 15 DAYS
     Route: 065
  2. IDURSULFASE [Suspect]
     Active Substance: IDURSULFASE
     Indication: MUCOPOLYSACCHARIDOSIS II
     Dosage: 4 OR 5 VIALS
     Route: 065
  3. PHENOBARBITAL. [Concomitant]
     Active Substance: PHENOBARBITAL
     Indication: SEIZURE
  4. BACLOPHEN [Concomitant]
     Active Substance: BACLOFEN
     Indication: ANALGESIC THERAPY
  5. SALBUTAMOL [Concomitant]
     Active Substance: ALBUTEROL
     Indication: DYSPNOEA
  6. VALPROIC ACID. [Concomitant]
     Active Substance: VALPROIC ACID
     Indication: SEIZURE
  7. AMLODIPINE [Concomitant]
     Active Substance: AMLODIPINE BESYLATE
     Indication: BLOOD PRESSURE MEASUREMENT
  8. OMEPRAZOLE. [Concomitant]
     Active Substance: OMEPRAZOLE
     Indication: ABDOMINAL DISCOMFORT
  9. DOMPERIDONE [Concomitant]
     Active Substance: DOMPERIDONE
     Indication: ABDOMINAL DISCOMFORT

REACTIONS (11)
  - Inappropriate schedule of product administration [Unknown]
  - Seizure [Unknown]
  - Product availability issue [Unknown]
  - Drug ineffective [Unknown]
  - Cardiac arrest [Unknown]
  - Malaise [Not Recovered/Not Resolved]
  - Blood pressure measurement [Unknown]
  - Condition aggravated [Unknown]
  - Respiratory disorder [Not Recovered/Not Resolved]
  - Respiratory arrest [Recovered/Resolved]
  - Device related infection [Recovering/Resolving]

NARRATIVE: CASE EVENT DATE: 202005
